FAERS Safety Report 15692795 (Version 1)
Quarter: 2018Q4

REPORT INFORMATION
  Report Type: Spontaneous
  Country: GR (occurrence: GR)
  Receive Date: 20181206
  Receipt Date: 20181206
  Transmission Date: 20190205
  Serious: Yes (Hospitalization, Other)
  Sender: FDA-Public Use
  Company Number: GR-ACCORD-067842

PATIENT
  Age: 74 Year
  Sex: Male

DRUGS (3)
  1. RANOLAZINE/RANOLAZINE HYDROCHLORIDE [Interacting]
     Active Substance: RANOLAZINE HYDROCHLORIDE
     Indication: ANGINA PECTORIS
     Dosage: UNK
  2. INSULIN [Concomitant]
     Active Substance: INSULIN NOS
     Indication: DIABETES MELLITUS
  3. SIMVASTATIN. [Suspect]
     Active Substance: SIMVASTATIN
     Indication: DYSLIPIDAEMIA
     Route: 048

REACTIONS (5)
  - Blood creatine phosphokinase increased [Recovering/Resolving]
  - Enzyme inhibition [Recovering/Resolving]
  - Drug interaction [Unknown]
  - Rhabdomyolysis [Recovering/Resolving]
  - Transaminases increased [Unknown]
